FAERS Safety Report 12178039 (Version 1)
Quarter: 2016Q1

REPORT INFORMATION
  Report Type: Spontaneous
  Country: HR (occurrence: HR)
  Receive Date: 20160314
  Receipt Date: 20160314
  Transmission Date: 20160526
  Serious: Yes (Hospitalization)
  Sender: FDA-Public Use
  Company Number: HR-TEVA-641557ACC

PATIENT
  Age: 46 Year
  Sex: Female

DRUGS (1)
  1. VOLTAREN [Suspect]
     Active Substance: DICLOFENAC SODIUM
     Indication: MIGRAINE
     Dosage: 200 MILLIGRAM DAILY;
     Route: 048

REACTIONS (4)
  - Oedema peripheral [Recovering/Resolving]
  - Renal tubular necrosis [Recovering/Resolving]
  - Renal injury [Recovering/Resolving]
  - Oliguria [Recovering/Resolving]

NARRATIVE: CASE EVENT DATE: 201510
